FAERS Safety Report 16379375 (Version 2)
Quarter: 2020Q1

REPORT INFORMATION
  Report Type: Report from Study
  Country: US (occurrence: US)
  Receive Date: 20190531
  Receipt Date: 20200102
  Transmission Date: 20200409
  Serious: Yes (Death, Hospitalization)
  Sender: FDA-Public Use
  Company Number: US-ACTELION-A-NJ2018-172598

PATIENT
  Sex: Female
  Weight: 59.86 kg

DRUGS (5)
  1. OXYGEN. [Concomitant]
     Active Substance: OXYGEN
     Indication: DYSPNOEA
  2. SILDENAFIL CITRATE. [Concomitant]
     Active Substance: SILDENAFIL CITRATE
  3. OPSUMIT [Suspect]
     Active Substance: MACITENTAN
     Indication: PULMONARY HYPERTENSION
     Dosage: 10 MG, QD
     Route: 048
  4. VELETRI [Suspect]
     Active Substance: EPOPROSTENOL
     Indication: PULMONARY HYPERTENSION
     Route: 042
  5. REMODULIN [Concomitant]
     Active Substance: TREPROSTINIL

REACTIONS (13)
  - Right ventricular failure [Fatal]
  - Cough [Unknown]
  - Productive cough [Unknown]
  - Diarrhoea [Unknown]
  - Septic shock [Fatal]
  - Dyspnoea exertional [Unknown]
  - Fatigue [Unknown]
  - Paraesthesia oral [Unknown]
  - Oedema [Unknown]
  - Headache [Unknown]
  - Oedema peripheral [Unknown]
  - Pain in jaw [Unknown]
  - Anaphylactic reaction [Fatal]
